FAERS Safety Report 10500168 (Version 2)
Quarter: 2014Q4

REPORT INFORMATION
  Report Type: Spontaneous
  Country: US (occurrence: US)
  Receive Date: 20141006
  Receipt Date: 20141006
  Transmission Date: 20150528
  Serious: No
  Sender: FDA-Public Use
  Company Number: US-AMGEN INC.-USASP2014044680

PATIENT
  Sex: Female
  Weight: 39.46 kg

DRUGS (2)
  1. PROLIA [Suspect]
     Active Substance: DENOSUMAB
     Indication: OSTEOPOROSIS POSTMENOPAUSAL
  2. PROLIA [Suspect]
     Active Substance: DENOSUMAB
     Indication: PRODUCT USED FOR UNKNOWN INDICATION
     Dosage: UNK
     Route: 065
     Dates: start: 20140515

REACTIONS (12)
  - Pyrexia [Unknown]
  - Ear infection [Unknown]
  - Abdominal pain lower [Unknown]
  - Ear pain [Unknown]
  - Pruritus [Unknown]
  - Chest pain [Unknown]
  - Erythema [Unknown]
  - Weight decreased [Unknown]
  - Chills [Unknown]
  - Feeling hot [Unknown]
  - Feeling abnormal [Unknown]
  - Rash [Unknown]
